FAERS Safety Report 15642835 (Version 1)
Quarter: 2018Q4

REPORT INFORMATION
  Report Type: Spontaneous
  Country: US (occurrence: US)
  Receive Date: 20181120
  Receipt Date: 20181120
  Transmission Date: 20190205
  Serious: Yes (Hospitalization)
  Sender: FDA-Public Use
  Company Number: None

PATIENT
  Age: 27 Year
  Sex: Female

DRUGS (10)
  1. TRAMODOL [Concomitant]
     Active Substance: TRAMADOL
  2. ESTRADIOL. [Concomitant]
     Active Substance: ESTRADIOL
  3. GABAPENTIN. [Concomitant]
     Active Substance: GABAPENTIN
  4. ORPHENADRINE [Concomitant]
     Active Substance: ORPHENADRINE
  5. FLUCONAZOLE. [Concomitant]
     Active Substance: FLUCONAZOLE
  6. METRONIDAZOL [Concomitant]
     Active Substance: METRONIDAZOLE
  7. MOXIFLOXACIN. [Concomitant]
     Active Substance: MOXIFLOXACIN
  8. APAP/CODEINE [Concomitant]
     Active Substance: ACETAMINOPHEN\CODEINE PHOSPHATE
  9. HUMIRA [Suspect]
     Active Substance: ADALIMUMAB
     Indication: CROHN^S DISEASE
     Dosage: ?          OTHER FREQUENCY:QOW;?
     Route: 058
     Dates: start: 20180312
  10. GABAPENTIN. [Concomitant]
     Active Substance: GABAPENTIN

REACTIONS (1)
  - Therapy cessation [None]

NARRATIVE: CASE EVENT DATE: 20181001
